FAERS Safety Report 12366687 (Version 2)
Quarter: 2016Q2

REPORT INFORMATION
  Report Type: Spontaneous
  Country: BR (occurrence: BR)
  Receive Date: 20160513
  Receipt Date: 20160620
  Transmission Date: 20160815
  Serious: Yes (Other)
  Sender: FDA-Public Use
  Company Number: BR-PFIZER INC-2016220868

PATIENT
  Age: 34 Year
  Sex: Male
  Weight: 44 kg

DRUGS (2)
  1. IBUPROFEN. [Concomitant]
     Active Substance: IBUPROFEN
     Indication: PAIN
     Dosage: UNK
  2. TALIGLUCERASE ALFA [Suspect]
     Active Substance: TALIGLUCERASE ALFA
     Indication: GAUCHER^S DISEASE
     Dosage: 60 UNITS PER KG, EVERY 15 DAYS
     Dates: start: 2010, end: 201511

REACTIONS (5)
  - Bone disorder [Not Recovered/Not Resolved]
  - Treatment noncompliance [Unknown]
  - Musculoskeletal disorder [Unknown]
  - Arthropathy [Unknown]
  - Gait disturbance [Not Recovered/Not Resolved]

NARRATIVE: CASE EVENT DATE: 2014
